FAERS Safety Report 4910308-9 (Version None)
Quarter: 2006Q1

REPORT INFORMATION
  Report Type: 
  Country: None (occurrence: None)
  Receive Date: 20060209
  Receipt Date: 20060203
  Transmission Date: 20060701
  Serious: Yes (Death)
  Sender: FDA-Public Use
  Company Number: 2006-UK-00006UK

PATIENT
  Age: 60 Year
  Sex: Male

DRUGS (1)
  1. MORPHINE SULFATE [Suspect]
     Indication: PALLIATIVE CARE
     Dosage: ADMINISTERED AS AN INJECTION VIA SYRINGE DRIVER. SINGLE DOSE 40MG, SEE TEXT
     Dates: start: 20050816

REACTIONS (1)
  - MEDICATION ERROR [None]
